FAERS Safety Report 5709045-2 (Version None)
Quarter: 2008Q2

REPORT INFORMATION
  Report Type: 
  Country: None (occurrence: None)
  Receive Date: 20080416
  Receipt Date: 20080416
  Transmission Date: 20081010
  Serious: No
  Sender: FDA-Public Use
  Company Number: None

PATIENT
  Sex: Female
  Weight: 93.441 kg

DRUGS (2)
  1. CARTIA  240MG QD [Suspect]
     Dates: start: 20080310, end: 20080413
  2. KLOR-CON [Suspect]
     Dates: start: 20080310, end: 20080414

REACTIONS (1)
  - PRURITUS [None]
